FAERS Safety Report 13522214 (Version 1)
Quarter: 2017Q2

REPORT INFORMATION
  Report Type: Spontaneous
  Country: FR (occurrence: FR)
  Receive Date: 20170508
  Receipt Date: 20170508
  Transmission Date: 20170830
  Serious: Yes (Death, Congenital Anomaly, Other)
  Sender: FDA-Public Use
  Company Number: FR-GLAXOSMITHKLINE-FR2017GSK066085

PATIENT

DRUGS (2)
  1. LAMICTAL [Suspect]
     Active Substance: LAMOTRIGINE
     Indication: EPILEPSY
     Dosage: 200 MG, 1D
     Route: 064
     Dates: start: 20161224, end: 20170408
  2. SPECIAFOLDINE [Concomitant]
     Active Substance: FOLIC ACID
     Dosage: 5 MG, UNK
     Route: 064

REACTIONS (8)
  - Single functional kidney [Fatal]
  - Foetal exposure during pregnancy [Unknown]
  - Spinal deformity [Fatal]
  - Hemivertebra [Fatal]
  - Foetal megacystis [Fatal]
  - Oligohydramnios [Fatal]
  - Limb malformation [Fatal]
  - Congenital hand malformation [Fatal]

NARRATIVE: CASE EVENT DATE: 20170328
